FAERS Safety Report 12374130 (Version 3)
Quarter: 2017Q4

REPORT INFORMATION
  Report Type: Report from Study
  Country: GB (occurrence: GB)
  Receive Date: 20160517
  Receipt Date: 20171210
  Transmission Date: 20180320
  Serious: Yes (Disabling)
  Sender: FDA-Public Use
  Company Number: GB-BEH-2016060797

PATIENT
  Age: 49 Year
  Sex: Female

DRUGS (1)
  1. PLACEBO [Suspect]
     Active Substance: UNSPECIFIED INGREDIENT
     Indication: TRAUMATIC HAEMORRHAGE
     Route: 065
     Dates: start: 20160306

REACTIONS (9)
  - Agitation [Not Recovered/Not Resolved]
  - Delusion [Not Recovered/Not Resolved]
  - Confusional state [Not Recovered/Not Resolved]
  - Motor dysfunction [Not Recovered/Not Resolved]
  - Ischaemic stroke [Recovered/Resolved with Sequelae]
  - Monoplegia [Not Recovered/Not Resolved]
  - Hemiparesis [Not Recovered/Not Resolved]
  - Hallucination [Not Recovered/Not Resolved]
  - Thalamic infarction [Recovered/Resolved with Sequelae]

NARRATIVE: CASE EVENT DATE: 20160309
